FAERS Safety Report 12810306 (Version 5)
Quarter: 2017Q2

REPORT INFORMATION
  Report Type: Spontaneous
  Country: IT (occurrence: IT)
  Receive Date: 20161005
  Receipt Date: 20170428
  Transmission Date: 20170830
  Serious: Yes (Other)
  Sender: FDA-Public Use
  Company Number: IT-ALEXION PHARMACEUTICALS INC.-A201606562

PATIENT
  Age: 28 Year
  Sex: Female
  Weight: 63 kg

DRUGS (9)
  1. SOLIRIS [Suspect]
     Active Substance: ECULIZUMAB
     Dosage: 1200 MG, QW
     Route: 042
     Dates: start: 20161221
  2. FOLIC ACID. [Concomitant]
     Active Substance: FOLIC ACID
     Indication: PRODUCT USED FOR UNKNOWN INDICATION
     Route: 065
  3. SOLIRIS [Suspect]
     Active Substance: ECULIZUMAB
     Indication: PAROXYSMAL NOCTURNAL HAEMOGLOBINURIA
     Dosage: 900 MG, EVERY 15 DAYS
     Route: 042
     Dates: start: 20110721
  4. SOLIRIS [Suspect]
     Active Substance: ECULIZUMAB
     Dosage: 1200 MG, UNK
     Route: 042
  5. HEPARIN LMW [Concomitant]
     Active Substance: UNSPECIFIED INGREDIENT
     Indication: PRODUCT USED FOR UNKNOWN INDICATION
     Route: 065
  6. SOLIRIS [Suspect]
     Active Substance: ECULIZUMAB
     Dosage: 900 MG, QW
     Route: 042
  7. SOLIRIS [Suspect]
     Active Substance: ECULIZUMAB
     Dosage: 900 MG, Q2W
     Route: 042
  8. SOLIRIS [Suspect]
     Active Substance: ECULIZUMAB
     Dosage: 900 MG, QW
     Route: 042
     Dates: start: 20161130
  9. SOLIRIS [Suspect]
     Active Substance: ECULIZUMAB
     Dosage: 900 MG, QW
     Route: 042

REACTIONS (5)
  - Inappropriate schedule of drug administration [Unknown]
  - Escherichia urinary tract infection [Recovered/Resolved]
  - Incorrect dose administered [Unknown]
  - Exposure during pregnancy [Recovered/Resolved]
  - Exposure during breast feeding [Unknown]

NARRATIVE: CASE EVENT DATE: 20161130
